FAERS Safety Report 5356530-1 (Version None)
Quarter: 2007Q2

REPORT INFORMATION
  Report Type: 
  Country: None (occurrence: None)
  Receive Date: 20070530
  Receipt Date: 20061106
  Transmission Date: 20071010
  Serious: Yes (Other)
  Sender: FDA-Public Use
  Company Number: US200608006504

PATIENT
  Age: 34 Year
  Sex: Male
  Weight: 68.5 kg

DRUGS (4)
  1. ZYPREXA [Suspect]
     Dates: start: 19990101, end: 20030101
  2. SEROQUEL                                   /UNK/ (QUETIAPINE FUMARATE) [Concomitant]
  3. HALDOL SOLUTAB [Concomitant]
  4. DEPAKOTE [Concomitant]

REACTIONS (1)
  - PANCREATITIS [None]
